FAERS Safety Report 19182140 (Version 6)
Quarter: 2022Q2

REPORT INFORMATION
  Report Type: Report from Study
  Country: CL (occurrence: CL)
  Receive Date: 20210426
  Receipt Date: 20220415
  Transmission Date: 20220721
  Serious: Yes (Hospitalization, Other)
  Sender: FDA-Public Use
  Company Number: CL-BRISTOL-MYERS SQUIBB COMPANY-BMS-2021-016293

PATIENT
  Age: 55 Year
  Sex: Male
  Weight: 79 kg

DRUGS (21)
  1. NIVOLUMAB [Suspect]
     Active Substance: NIVOLUMAB
     Indication: Malignant melanoma
     Route: 042
     Dates: start: 20210106
  2. TAMSULOSIN [Concomitant]
     Active Substance: TAMSULOSIN
     Indication: Product used for unknown indication
     Route: 048
     Dates: start: 2017, end: 20210416
  3. LIDOCAINE [Concomitant]
     Active Substance: LIDOCAINE
     Indication: Diarrhoea
     Dosage: 1 DOSAGE FORM
     Route: 061
     Dates: start: 20210202, end: 20210416
  4. METRONIDAZOLE [Concomitant]
     Active Substance: METRONIDAZOLE
     Indication: Clostridium difficile infection
     Dosage: 500 MILLIGRAM
     Route: 048
     Dates: start: 20210206, end: 20210416
  5. VANCOMYCIN [Concomitant]
     Active Substance: VANCOMYCIN
     Indication: Clostridium difficile infection
     Dosage: 125 MILLIGRAM
     Route: 048
     Dates: start: 20210208, end: 20210416
  6. POTASSIUM CHLORIDE [Concomitant]
     Active Substance: POTASSIUM CHLORIDE
     Indication: Diarrhoea
     Route: 042
     Dates: start: 20210208, end: 20210208
  7. POTASSIUM CHLORIDE [Concomitant]
     Active Substance: POTASSIUM CHLORIDE
     Dosage: 2 GRAM
     Route: 042
     Dates: start: 20210216, end: 20210216
  8. POTASSIUM CHLORIDE [Concomitant]
     Active Substance: POTASSIUM CHLORIDE
     Dosage: 1 DF = 2 UNITS NOS?FOR GRADE 3 DIARRHEA?ON 08-FEB-2021: 2G IV FOR POTASSIUM DECREASE?ON 16-FEB-2021:
     Route: 042
     Dates: start: 20210125, end: 20210125
  9. PARGEVERINE [Concomitant]
     Active Substance: PARGEVERINE
     Indication: Abdominal pain
     Route: 042
     Dates: start: 20210216, end: 20210216
  10. PARGEVERINE [Concomitant]
     Active Substance: PARGEVERINE
     Dosage: 1 DF = 30 UNIT NOS?FOR GRADE 1 ABDOMINAL PAIN?ON 16-FEB-2021 5G IV FOR GRADE 2 ABDOMINAL PAIN
     Route: 048
     Dates: start: 20210118, end: 20210416
  11. DESLORATADINE [Concomitant]
     Active Substance: DESLORATADINE
     Indication: Pruritus
     Dosage: 5 MILLIGRAM, QD
     Route: 048
     Dates: start: 20210113, end: 20210406
  12. LOPERAMIDE [Concomitant]
     Active Substance: LOPERAMIDE
     Indication: Diarrhoea
     Dosage: 4 MILLIGRAM, QD
     Route: 048
     Dates: start: 20210118, end: 20210416
  13. UREA [Concomitant]
     Active Substance: UREA
     Indication: Pruritus
     Dosage: 1 DOSAGE FORM
     Route: 061
     Dates: start: 20210113
  14. SODIUM CHLORIDE [Concomitant]
     Active Substance: SODIUM CHLORIDE
     Indication: Diarrhoea
     Dosage: UNK
     Route: 042
     Dates: start: 20210118
  15. SODIUM CHLORIDE [Concomitant]
     Active Substance: SODIUM CHLORIDE
     Dosage: UNK
     Route: 042
     Dates: start: 20210125
  16. PREDNISONE [Concomitant]
     Active Substance: PREDNISONE
     Indication: Diarrhoea
     Dosage: 80 MILLIGRAM, QD
     Route: 042
     Dates: start: 20210125, end: 20210205
  17. PREDNISONE [Concomitant]
     Active Substance: PREDNISONE
     Indication: Amylase increased
     Dosage: 40 MILLIGRAM
     Route: 048
     Dates: start: 20210206, end: 20210415
  18. SODIUM CHLORIDE [Concomitant]
     Active Substance: SODIUM CHLORIDE
     Indication: Diarrhoea
     Dosage: 1 DF = 1 UNIT NOS?1 DF = 1000 UNIT NOS?FOR GRADE 2 AND 3 DIARRHEA?ON 08-FEB2021 2G IV FOR HYPONATREM
     Route: 042
     Dates: start: 20210118, end: 20210118
  19. SODIUM CHLORIDE [Concomitant]
     Active Substance: SODIUM CHLORIDE
     Route: 042
     Dates: start: 20210125, end: 20210125
  20. MAGNESIUM SULFATE [Concomitant]
     Active Substance: MAGNESIUM SULFATE
     Indication: Diarrhoea
     Dosage: 1 DF = 2 UNITS NOS?FOR GRADE 2 AND GRADE 3 DIARRHEA?ON 16-FEB-2021: 1G IV
     Route: 042
     Dates: start: 20210125, end: 20210125
  21. MAGNESIUM SULFATE [Concomitant]
     Active Substance: MAGNESIUM SULFATE
     Dosage: 1 GRAM
     Route: 042
     Dates: start: 20210216, end: 20210216

REACTIONS (1)
  - Colitis ulcerative [Recovered/Resolved with Sequelae]

NARRATIVE: CASE EVENT DATE: 20210216
